FAERS Safety Report 24037559 (Version 1)
Quarter: 2024Q3

REPORT INFORMATION
  Report Type: Spontaneous
  Country: US (occurrence: US)
  Receive Date: 20240702
  Receipt Date: 20240702
  Transmission Date: 20241017
  Serious: No
  Sender: GLAXOSMITHKLINE
  Company Number: US-GSK-US2024AMR078926

PATIENT
  Sex: Female

DRUGS (1)
  1. BENLYSTA [Suspect]
     Active Substance: BELIMUMAB
     Indication: Product used for unknown indication
     Dosage: UNK

REACTIONS (12)
  - Heart rate increased [Unknown]
  - Dizziness [Unknown]
  - Fluid retention [Unknown]
  - Blood cholesterol increased [Unknown]
  - Malaise [Unknown]
  - Back pain [Unknown]
  - Swelling [Unknown]
  - Amnesia [Unknown]
  - Fatigue [Unknown]
  - Headache [Unknown]
  - Product dose omission issue [Unknown]
  - Product dose omission in error [Unknown]
